FAERS Safety Report 6871996 (Version 6)
Quarter: 2013Q3

REPORT INFORMATION
  Report Type: Spontaneous
  Country: US (occurrence: US)
  Receive Date: 20050725
  Receipt Date: 20130813
  Transmission Date: 20140515
  Serious: Yes (Hospitalization, Disabling, Other)
  Sender: FDA-Public Use
  Company Number: US-PFIZER INC-2005103347

PATIENT
  Age: 41 Year
  Sex: Female
  Weight: 77.1 kg

DRUGS (3)
  1. XANAX [Suspect]
     Indication: PANIC DISORDER WITH AGORAPHOBIA
     Dosage: 1 MG, AS NEEDED (SEVEN TO NINE TIMES A DAY)
  2. DILANTIN [Suspect]
     Dosage: UNK
     Dates: start: 1996
  3. ALPRAZOLAM [Suspect]
     Indication: PANIC DISORDER WITH AGORAPHOBIA
     Dosage: UNK

REACTIONS (16)
  - Ruptured cerebral aneurysm [Unknown]
  - Road traffic accident [Unknown]
  - Uterine disorder [Unknown]
  - Oral disorder [Unknown]
  - Withdrawal syndrome [Unknown]
  - Convulsion [Unknown]
  - Disorientation [Unknown]
  - Thyroid neoplasm [Unknown]
  - General physical health deterioration [Unknown]
  - Drug hypersensitivity [Unknown]
  - Drug ineffective [Unknown]
  - Skin exfoliation [Unknown]
  - Drug level changed [Unknown]
  - Blood cholesterol abnormal [Unknown]
  - Feeling abnormal [Unknown]
  - Daydreaming [Unknown]
